FAERS Safety Report 9261786 (Version 1)
Quarter: 2013Q2

REPORT INFORMATION
  Report Type: Spontaneous
  Country: PL (occurrence: PL)
  Receive Date: 20130429
  Receipt Date: 20130429
  Transmission Date: 20140414
  Serious: Yes (Hospitalization)
  Sender: FDA-Public Use
  Company Number: CHPA2013PL006802

PATIENT
  Sex: Male
  Weight: 70 kg

DRUGS (1)
  1. THERAFLU EXTRAGRIP [Suspect]
     Indication: UPPER RESPIRATORY TRACT INFLAMMATION
     Dosage: 1 DF, TID
     Route: 048
     Dates: start: 20121018, end: 20121019

REACTIONS (1)
  - Dysuria [Recovered/Resolved]
